FAERS Safety Report 18299214 (Version 1)
Quarter: 2020Q3

REPORT INFORMATION
  Report Type: Spontaneous
  Country: US (occurrence: US)
  Receive Date: 20200922
  Receipt Date: 20200922
  Transmission Date: 20201103
  Serious: Yes (Hospitalization)
  Sender: FDA-Public Use
  Company Number: None

PATIENT
  Age: 90 Year
  Sex: Female
  Weight: 47.17 kg

DRUGS (28)
  1. ALBUTEROL SULFATE. [Concomitant]
     Active Substance: ALBUTEROL SULFATE
  2. MILK OF MAGNEASIA [Concomitant]
  3. CENTRUM SILVER VITAMINS [Concomitant]
  4. DOCUSATE SODIUM. [Concomitant]
     Active Substance: DOCUSATE SODIUM
  5. FERROUS SULFATE. [Concomitant]
     Active Substance: FERROUS SULFATE
  6. SYNTHROID [Concomitant]
     Active Substance: LEVOTHYROXINE SODIUM
  7. TYLENOL [Concomitant]
     Active Substance: ACETAMINOPHEN
  8. ANORO ELLIPTA [Suspect]
     Active Substance: UMECLIDINIUM BROMIDE\VILANTEROL TRIFENATATE
     Indication: CHRONIC OBSTRUCTIVE PULMONARY DISEASE
     Dosage: ?          QUANTITY:1 DF DOSAGE FORM;?
     Route: 048
     Dates: end: 20200331
  9. CENTRUM SILVER [Concomitant]
     Active Substance: MINERALS\VITAMINS
  10. TUMS [Concomitant]
     Active Substance: CALCIUM CARBONATE
  11. ISOPROPYL ALCOHOL. [Concomitant]
     Active Substance: ISOPROPYL ALCOHOL
  12. ANORO ELLIPTA [Suspect]
     Active Substance: UMECLIDINIUM BROMIDE\VILANTEROL TRIFENATATE
     Indication: ASTHMA
     Dosage: ?          QUANTITY:1 DF DOSAGE FORM;?
     Route: 048
     Dates: end: 20200331
  13. GABAPETIN [Concomitant]
     Active Substance: GABAPENTIN
  14. MEDICAL PHILLIPS NEBULIZER [Concomitant]
  15. META MUCIL [Concomitant]
  16. ISOPROPYL ALCOHOL. [Concomitant]
     Active Substance: ISOPROPYL ALCOHOL
  17. TUMS [Concomitant]
     Active Substance: CALCIUM CARBONATE
  18. HYDROGEN PEROXIDE. [Concomitant]
     Active Substance: HYDROGEN PEROXIDE
  19. BRIMONIDINE TRATE [Concomitant]
  20. ONDANSETRON [Concomitant]
     Active Substance: ONDANSETRON
  21. TIMILOL [Concomitant]
  22. META MUCIL [Concomitant]
  23. ATORVASTAIN [Concomitant]
     Active Substance: ATORVASTATIN
  24. CLOTRIMAZOLE. [Concomitant]
     Active Substance: CLOTRIMAZOLE
  25. TRIAMCOLONE OINTMENT [Concomitant]
  26. HYDROGEN PEROXIDE. [Concomitant]
     Active Substance: HYDROGEN PEROXIDE
  27. PHILLIPS MILK OF MAGNESIUM [Concomitant]
  28. TYLENOL [Concomitant]
     Active Substance: ACETAMINOPHEN

REACTIONS (21)
  - Rash [None]
  - Vision blurred [None]
  - Vomiting [None]
  - Pain in extremity [None]
  - Headache [None]
  - Dysuria [None]
  - Gait disturbance [None]
  - Eye pain [None]
  - Halo vision [None]
  - Diarrhoea [None]
  - Neck pain [None]
  - Pollakiuria [None]
  - Ocular hyperaemia [None]
  - Nausea [None]
  - Muscle spasms [None]
  - Lower respiratory tract infection [None]
  - Hypoaesthesia [None]
  - Blood pressure increased [None]
  - Nasopharyngitis [None]
  - Constipation [None]
  - Nervousness [None]

NARRATIVE: CASE EVENT DATE: 20191124
